FAERS Safety Report 25138219 (Version 1)
Quarter: 2025Q1

REPORT INFORMATION
  Report Type: Spontaneous
  Country: US (occurrence: US)
  Receive Date: 20250330
  Receipt Date: 20250330
  Transmission Date: 20250408
  Serious: Yes (Other)
  Sender: GLENMARK
  Company Number: US-MLMSERVICE-20250311-PI439718-00152-1

PATIENT
  Age: 74 Year
  Sex: Male

DRUGS (6)
  1. TACROLIMUS [Suspect]
     Active Substance: TACROLIMUS
     Indication: Immunosuppressant drug therapy
     Route: 065
  2. FLUOROURACIL [Suspect]
     Active Substance: FLUOROURACIL
     Indication: Actinic keratosis
     Dosage: UNK, BID
     Route: 061
  3. FLUOROURACIL [Suspect]
     Active Substance: FLUOROURACIL
     Indication: Squamous cell carcinoma of skin
  4. PREDNISONE [Suspect]
     Active Substance: PREDNISONE
     Indication: Immunosuppressant drug therapy
     Route: 065
  5. ACITRETIN [Concomitant]
     Active Substance: ACITRETIN
     Indication: Actinic keratosis
     Route: 065
  6. ACITRETIN [Concomitant]
     Active Substance: ACITRETIN
     Indication: Squamous cell carcinoma of skin

REACTIONS (3)
  - Squamous cell carcinoma of skin [Unknown]
  - Paradoxical drug reaction [Unknown]
  - Condition aggravated [Unknown]
